FAERS Safety Report 8863371 (Version 1)
Quarter: 2012Q4

REPORT INFORMATION
  Report Type: 
  Country: GB (occurrence: GB)
  Receive Date: 20121025
  Receipt Date: 20121025
  Transmission Date: 20130627
  Serious: Yes (Other)
  Sender: FDA-Public Use
  Company Number: GB-GLAXOSMITHKLINE-B0840143A

PATIENT
  Age: 47 Year
  Sex: Female

DRUGS (1)
  1. BECLOMETASONE [Suspect]
     Indication: PRODUCT USED FOR UNKNOWN INDICATION
     Dosage: 100MCG per day
     Route: 055

REACTIONS (2)
  - Jaw disorder [Unknown]
  - Lymphadenopathy [Unknown]
